FAERS Safety Report 10965799 (Version 1)
Quarter: 2015Q1

REPORT INFORMATION
  Report Type: Spontaneous
  Country: CA (occurrence: CA)
  Receive Date: 20150330
  Receipt Date: 20150330
  Transmission Date: 20150721
  Serious: Yes (Hospitalization)
  Sender: FDA-Public Use
  Company Number: CA-ROCHE-1557636

PATIENT
  Age: 19 Year
  Sex: Male

DRUGS (4)
  1. XOLAIR [Suspect]
     Active Substance: OMALIZUMAB
     Indication: ASTHMA
     Dosage: BIW
     Route: 058
     Dates: start: 20141212
  2. VENTOLIN [Concomitant]
     Active Substance: ALBUTEROL SULFATE
  3. PREDNISONE. [Concomitant]
     Active Substance: PREDNISONE
  4. ADVAIR HFA [Concomitant]
     Active Substance: FLUTICASONE PROPIONATE\SALMETEROL XINAFOATE

REACTIONS (3)
  - Asthma [Unknown]
  - Malaise [Unknown]
  - Diabetes mellitus [Recovering/Resolving]

NARRATIVE: CASE EVENT DATE: 20150306
